FAERS Safety Report 7458774-1 (Version None)
Quarter: 2011Q2

REPORT INFORMATION
  Report Type: 
  Country: None (occurrence: None)
  Receive Date: 20110504
  Receipt Date: 20110502
  Transmission Date: 20111010
  Serious: Yes (Hospitalization, Other)
  Sender: FDA-Public Use
  Company Number: DE-ASTRAZENECA-2010SE47958

PATIENT
  Age: 66 Year
  Sex: Female
  Weight: 92 kg

DRUGS (1)
  1. ARIMIDEX [Suspect]
     Indication: BREAST CANCER
     Route: 048
     Dates: start: 20100308

REACTIONS (4)
  - PROCEDURAL COMPLICATION [None]
  - PERIPHERAL SENSORY NEUROPATHY [None]
  - HIP ARTHROPLASTY [None]
  - ARTHRALGIA [None]
